FAERS Safety Report 6668446-9 (Version None)
Quarter: 2010Q2

REPORT INFORMATION
  Report Type: 
  Country: None (occurrence: None)
  Receive Date: 20100406
  Receipt Date: 20100326
  Transmission Date: 20101027
  Serious: Yes (Hospitalization)
  Sender: FDA-Public Use
  Company Number: PHHY2010AT08684

PATIENT
  Sex: Female
  Weight: 46 kg

DRUGS (1)
  1. ACLASTA [Suspect]
     Indication: OSTEOPOROSIS
     Route: 042

REACTIONS (6)
  - ANAPHYLACTOID REACTION [None]
  - ASTHMA [None]
  - ECZEMA [None]
  - ERYTHEMA [None]
  - FLUSHING [None]
  - RASH [None]
